FAERS Safety Report 9781773 (Version 1)
Quarter: 2013Q4

REPORT INFORMATION
  Report Type: Spontaneous
  Country: US (occurrence: US)
  Receive Date: 20131225
  Receipt Date: 20131225
  Transmission Date: 20140711
  Serious: No
  Sender: FDA-Public Use
  Company Number: US-009507513-1312USA006506

PATIENT
  Sex: Male

DRUGS (1)
  1. ELOCON [Suspect]
     Dosage: UNK

REACTIONS (1)
  - Erythema [Unknown]
